FAERS Safety Report 9959755 (Version 1)
Quarter: 2014Q1

REPORT INFORMATION
  Report Type: Spontaneous
  Country: US (occurrence: None)
  Receive Date: 20140228
  Receipt Date: 20140228
  Transmission Date: 20141002
  Serious: Yes (Hospitalization)
  Sender: FDA-Public Use
  Company Number: None

PATIENT
  Age: 78 Year
  Sex: Male
  Weight: 73 kg

DRUGS (9)
  1. BEVACIZUMAB (RHUMAB VEGF) (704865) [Suspect]
  2. CARBOPLATIN [Suspect]
  3. PACLITAXEL (TAXOL) [Suspect]
  4. ALBUTEROL [Concomitant]
  5. EMEND [Concomitant]
  6. IPRATOPIUM [Concomitant]
  7. METHLPREDNISOLONE [Concomitant]
  8. SENOKOT [Concomitant]
  9. ZOFRAN [Concomitant]

REACTIONS (5)
  - Neutropenia [None]
  - Pleural effusion [None]
  - Atelectasis [None]
  - Pyrexia [None]
  - Pneumonia [None]
